FAERS Safety Report 8371582-2 (Version None)
Quarter: 2012Q2

REPORT INFORMATION
  Report Type: 
  Country: None (occurrence: None)
  Receive Date: 20120518
  Receipt Date: 20120507
  Transmission Date: 20120825
  Serious: No
  Sender: FDA-Public Use
  Company Number: US-ASTRAZENECA-2012SE29198

PATIENT
  Age: 72 Year
  Sex: Female
  Weight: 77.1 kg

DRUGS (6)
  1. FISH OIL [Concomitant]
  2. CRESTOR [Suspect]
     Indication: BLOOD CHOLESTEROL INCREASED
     Route: 048
  3. CALTRATE 600 D [Concomitant]
  4. LEVOTHYROXINE SODIUM [Concomitant]
     Indication: THYROID DISORDER
  5. ZOCOR [Concomitant]
  6. MULTI-VITAMINS [Concomitant]
     Dosage: DAILY

REACTIONS (1)
  - NEUROPATHY PERIPHERAL [None]
